FAERS Safety Report 13081817 (Version 1)
Quarter: 2017Q1

REPORT INFORMATION
  Report Type: Spontaneous
  Country: US (occurrence: US)
  Receive Date: 20170103
  Receipt Date: 20170103
  Transmission Date: 20170428
  Serious: No
  Sender: FDA-Public Use
  Company Number: US-BAYER-2016-243481

PATIENT
  Age: 49 Year
  Sex: Male
  Weight: 99.77 kg

DRUGS (2)
  1. CLARITIN-D 24 HOUR [Suspect]
     Active Substance: LORATADINE\PSEUDOEPHEDRINE SULFATE
     Indication: SINUS CONGESTION
     Dosage: UNK
     Route: 048
  2. ZITHROMAX [Concomitant]
     Active Substance: AZITHROMYCIN DIHYDRATE
     Dosage: UNK

REACTIONS (8)
  - Vertigo [Recovered/Resolved]
  - Nausea [Recovered/Resolved with Sequelae]
  - Palpitations [Recovered/Resolved with Sequelae]
  - Fluid intake reduced [Recovered/Resolved with Sequelae]
  - Hyperhidrosis [Recovered/Resolved]
  - Dizziness [Recovered/Resolved with Sequelae]
  - Off label use [Unknown]
  - Feeding disorder [Recovered/Resolved with Sequelae]

NARRATIVE: CASE EVENT DATE: 201612
